FAERS Safety Report 11452205 (Version 1)
Quarter: 2015Q3

REPORT INFORMATION
  Report Type: Spontaneous
  Country: US (occurrence: US)
  Receive Date: 20150903
  Receipt Date: 20150903
  Transmission Date: 20151125
  Serious: No
  Sender: FDA-Public Use
  Company Number: US-ROCHE-1025575

PATIENT
  Sex: Male

DRUGS (4)
  1. PEGASYS [Suspect]
     Active Substance: PEGINTERFERON ALFA-2A
     Indication: CHRONIC HEPATITIS C
     Route: 058
  2. TELAPREVIR [Suspect]
     Active Substance: TELAPREVIR
     Indication: PRODUCT USED FOR UNKNOWN INDICATION
  3. COPEGUS [Suspect]
     Active Substance: RIBAVIRIN
     Indication: CHRONIC HEPATITIS C
     Route: 048
  4. BOCEPREVIR [Suspect]
     Active Substance: BOCEPREVIR
     Indication: CHRONIC HEPATITIS C
     Route: 065
     Dates: start: 20120331

REACTIONS (18)
  - Abnormal dreams [Unknown]
  - Arthralgia [Unknown]
  - Dizziness [Unknown]
  - Alopecia [Unknown]
  - Platelet count decreased [Unknown]
  - Fatigue [Unknown]
  - Pruritus [Unknown]
  - Muscle spasms [Unknown]
  - Sleep disorder [Unknown]
  - Hepatic neoplasm [Unknown]
  - Dry skin [Unknown]
  - Diarrhoea [Unknown]
  - Myalgia [Unknown]
  - Dry mouth [Unknown]
  - Dysgeusia [Unknown]
  - Thirst [Unknown]
  - Joint swelling [Unknown]
  - Tumour excision [Unknown]
